FAERS Safety Report 19704011 (Version 1)
Quarter: 2021Q3

REPORT INFORMATION
  Report Type: Spontaneous
  Country: US (occurrence: US)
  Receive Date: 20210813
  Receipt Date: 20210813
  Transmission Date: 20211014
  Serious: Yes (Death)
  Sender: FDA-Public Use
  Company Number: None

PATIENT
  Age: 39 Year
  Sex: Female

DRUGS (1)
  1. IMATINIB. [Suspect]
     Active Substance: IMATINIB MESYLATE
     Indication: LEUKAEMIA
     Route: 048
     Dates: start: 20200619, end: 20210718

REACTIONS (1)
  - Death [None]

NARRATIVE: CASE EVENT DATE: 20210718
